FAERS Safety Report 6141798-4 (Version None)
Quarter: 2009Q2

REPORT INFORMATION
  Report Type: 
  Country: None (occurrence: None)
  Receive Date: 20090402
  Receipt Date: 20090309
  Transmission Date: 20091009
  Serious: No
  Sender: FDA-Public Use
  Company Number: US-ABBOTT-09P-163-0500802-00

PATIENT
  Sex: Female
  Weight: 63.56 kg

DRUGS (5)
  1. LUPRON DEPOT [Suspect]
     Indication: UTERINE LEIOMYOMA
     Route: 030
     Dates: start: 20090123
  2. LUPRON DEPOT [Suspect]
     Indication: MENSTRUAL CYCLE MANAGEMENT
  3. LUPRON DEPOT [Suspect]
     Indication: PREOPERATIVE CARE
  4. PROGESTERONE [Concomitant]
     Indication: DRUG USE FOR UNKNOWN INDICATION
     Dates: start: 20090118, end: 20090122
  5. IRON SUPPLEMENTS [Concomitant]
     Indication: DRUG USE FOR UNKNOWN INDICATION
     Dosage: VERY HIGH, UNKNOWN DOSAGE

REACTIONS (10)
  - ANXIETY [None]
  - DIARRHOEA [None]
  - FEELING ABNORMAL [None]
  - HEADACHE [None]
  - HOT FLUSH [None]
  - MENSTRUATION IRREGULAR [None]
  - MUSCLE SPASMS [None]
  - NOCTURIA [None]
  - PALPITATIONS [None]
  - VAGINAL HAEMORRHAGE [None]
